FAERS Safety Report 13860811 (Version 6)
Quarter: 2018Q3

REPORT INFORMATION
  Report Type: Spontaneous
  Country: US (occurrence: US)
  Receive Date: 20170811
  Receipt Date: 20180828
  Transmission Date: 20181010
  Serious: Yes (Hospitalization, Other)
  Sender: FDA-Public Use
  Company Number: US-009507513-1708USA003736

PATIENT
  Age: 61 Year
  Sex: Female

DRUGS (8)
  1. NASONEX [Suspect]
     Active Substance: MOMETASONE FUROATE
     Indication: CHRONIC OBSTRUCTIVE PULMONARY DISEASE
     Dosage: 50 MICROGRAM, QD
     Route: 045
  2. FLUTICASONE PROPIONATE (+) SALMETEROL XINAFOATE [Interacting]
     Active Substance: FLUTICASONE PROPIONATE\SALMETEROL XINAFOATE
     Indication: CHRONIC OBSTRUCTIVE PULMONARY DISEASE
  3. NASONEX [Interacting]
     Active Substance: MOMETASONE FUROATE
     Indication: CHRONIC SINUSITIS
  4. VORICONAZOLE. [Interacting]
     Active Substance: VORICONAZOLE
     Dosage: 100 MG, BID (2.2 MG/KG)
     Route: 048
  5. FLUTICASONE PROPIONATE (+) SALMETEROL XINAFOATE [Interacting]
     Active Substance: FLUTICASONE PROPIONATE\SALMETEROL XINAFOATE
     Indication: CHRONIC SINUSITIS
     Dosage: FLUTICASONE 500 MCG/SALMETEROL 50 MCG, TWICE DAILY
     Route: 055
  6. TIOTROPIUM BROMIDE [Concomitant]
     Active Substance: TIOTROPIUM BROMIDE
     Dosage: 18 MICROGRAM, QD
     Route: 055
  7. VORICONAZOLE. [Interacting]
     Active Substance: VORICONAZOLE
     Indication: PNEUMONIA STAPHYLOCOCCAL
     Dosage: 200 MG, BID (4.5 MG/KG FOR 5 MONTHS)
     Route: 048
  8. ESOMEPRAZOLE [Concomitant]
     Active Substance: ESOMEPRAZOLE
     Dosage: 40 MG, QD
     Route: 048

REACTIONS (3)
  - Drug interaction [Recovering/Resolving]
  - Cushing^s syndrome [Recovering/Resolving]
  - Adrenal insufficiency [Recovering/Resolving]
